FAERS Safety Report 6098604-6 (Version None)
Quarter: 2009Q1

REPORT INFORMATION
  Report Type: 
  Country: None (occurrence: None)
  Receive Date: 20090302
  Receipt Date: 20090224
  Transmission Date: 20090719
  Serious: Yes (Hospitalization)
  Sender: FDA-Public Use
  Company Number: US-BIOGENIDEC-2009BI000500

PATIENT
  Age: 57 Year
  Sex: Female
  Weight: 54 kg

DRUGS (3)
  1. AVONEX [Suspect]
     Indication: MULTIPLE SCLEROSIS
     Route: 030
     Dates: end: 20090109
  2. AVONEX [Suspect]
     Route: 030
     Dates: start: 19961201
  3. AVONEX [Suspect]
     Route: 030

REACTIONS (9)
  - CEREBRAL HAEMORRHAGE [None]
  - CLAVICLE FRACTURE [None]
  - CONCUSSION [None]
  - FALL [None]
  - FEMUR FRACTURE [None]
  - FOOT FRACTURE [None]
  - FRACTURED COCCYX [None]
  - INJURY [None]
  - RIB FRACTURE [None]
